FAERS Safety Report 25396211 (Version 1)
Quarter: 2025Q2

REPORT INFORMATION
  Report Type: Spontaneous
  Country: US (occurrence: None)
  Receive Date: 20250603
  Receipt Date: 20250603
  Transmission Date: 20250716
  Serious: Yes (Other)
  Sender: FDA-CTU
  Company Number: None

PATIENT
  Age: 74 Year
  Sex: Male
  Weight: 90.45 kg

DRUGS (10)
  1. MONTELUKAST [Suspect]
     Active Substance: MONTELUKAST
     Dosage: OTHER QUANTITY : 1 CAPSULE(S);?FREQUENCY : AT BEDTIME;?
     Route: 048
     Dates: start: 20211021, end: 20250515
  2. VITAMINS [Concomitant]
     Active Substance: VITAMINS
  3. HERBALS [Concomitant]
     Active Substance: HERBALS
  4. HERBALS\SAW PALMETTO [Concomitant]
     Active Substance: HERBALS\SAW PALMETTO
  5. CALTRATE MAGNESIUM [Concomitant]
  6. DEVICE [Concomitant]
     Active Substance: DEVICE
  7. ATORVASTATIN [Concomitant]
     Active Substance: ATORVASTATIN
  8. HYDROCHLOROTHIAZ [Concomitant]
  9. PANTOPRAZOLE [Concomitant]
     Active Substance: PANTOPRAZOLE
  10. LEVOTHYROXINE [Concomitant]
     Active Substance: LEVOTHYROXINE

REACTIONS (5)
  - Ovarian cancer [None]
  - Drug ineffective [None]
  - Personality change [None]
  - Nightmare [None]
  - Therapy cessation [None]

NARRATIVE: CASE EVENT DATE: 20250515
